FAERS Safety Report 25576479 (Version 1)
Quarter: 2025Q3

REPORT INFORMATION
  Report Type: Spontaneous
  Country: US (occurrence: US)
  Receive Date: 20250718
  Receipt Date: 20250718
  Transmission Date: 20251021
  Serious: Yes (Hospitalization)
  Sender: MYLAN
  Company Number: US-MYLANLABS-2025M1059126

PATIENT
  Age: 61 Year
  Sex: Female

DRUGS (28)
  1. DOXYCYCLINE [Suspect]
     Active Substance: DOXYCYCLINE
     Indication: Mycobacterium fortuitum infection
  2. DOXYCYCLINE [Suspect]
     Active Substance: DOXYCYCLINE
     Indication: Device related infection
     Route: 065
  3. DOXYCYCLINE [Suspect]
     Active Substance: DOXYCYCLINE
     Route: 065
  4. DOXYCYCLINE [Suspect]
     Active Substance: DOXYCYCLINE
  5. AMIKACIN [Concomitant]
     Active Substance: AMIKACIN
     Indication: Mycobacterium fortuitum infection
  6. AMIKACIN [Concomitant]
     Active Substance: AMIKACIN
     Indication: Device related infection
     Route: 042
  7. AMIKACIN [Concomitant]
     Active Substance: AMIKACIN
     Route: 042
  8. AMIKACIN [Concomitant]
     Active Substance: AMIKACIN
  9. IMIPENEM [Concomitant]
     Active Substance: IMIPENEM
     Indication: Mycobacterium fortuitum infection
     Route: 042
  10. IMIPENEM [Concomitant]
     Active Substance: IMIPENEM
     Indication: Device related infection
  11. IMIPENEM [Concomitant]
     Active Substance: IMIPENEM
  12. IMIPENEM [Concomitant]
     Active Substance: IMIPENEM
     Route: 042
  13. IMIPENEM [Concomitant]
     Active Substance: IMIPENEM
     Route: 042
  14. IMIPENEM [Concomitant]
     Active Substance: IMIPENEM
  15. IMIPENEM [Concomitant]
     Active Substance: IMIPENEM
  16. IMIPENEM [Concomitant]
     Active Substance: IMIPENEM
     Route: 042
  17. LEVOFLOXACIN [Concomitant]
     Active Substance: LEVOFLOXACIN
     Indication: Mycobacterium fortuitum infection
  18. LEVOFLOXACIN [Concomitant]
     Active Substance: LEVOFLOXACIN
     Indication: Device related infection
     Route: 048
  19. LEVOFLOXACIN [Concomitant]
     Active Substance: LEVOFLOXACIN
     Route: 048
  20. LEVOFLOXACIN [Concomitant]
     Active Substance: LEVOFLOXACIN
  21. LINEZOLID [Concomitant]
     Active Substance: LINEZOLID
     Indication: Mycobacterium fortuitum infection
     Route: 065
  22. LINEZOLID [Concomitant]
     Active Substance: LINEZOLID
     Indication: Device related infection
  23. LINEZOLID [Concomitant]
     Active Substance: LINEZOLID
  24. LINEZOLID [Concomitant]
     Active Substance: LINEZOLID
     Route: 065
  25. LINEZOLID [Concomitant]
     Active Substance: LINEZOLID
     Route: 065
  26. LINEZOLID [Concomitant]
     Active Substance: LINEZOLID
  27. LINEZOLID [Concomitant]
     Active Substance: LINEZOLID
  28. LINEZOLID [Concomitant]
     Active Substance: LINEZOLID
     Route: 065

REACTIONS (1)
  - Drug ineffective [Unknown]
